FAERS Safety Report 8172504-X (Version None)
Quarter: 2012Q1

REPORT INFORMATION
  Report Type: 
  Country: None (occurrence: None)
  Receive Date: 20120227
  Receipt Date: 20120227
  Transmission Date: 20120608
  Serious: Yes (Death)
  Sender: FDA-Public Use
  Company Number: None

PATIENT
  Age: 41 Year
  Sex: Female
  Weight: 64.9 kg

DRUGS (9)
  1. ETODOLAC [Concomitant]
  2. BACTRIM [Suspect]
  3. MULTI-VITAMIN [Concomitant]
  4. ACETAMINOPHEN [Concomitant]
  5. OMNIPAQUE 140 [Concomitant]
  6. HYDROCODONE BITARTRATE [Concomitant]
  7. PHENAZOPYRIDINE HCL TAB [Concomitant]
  8. CIPROFLOXACIN [Suspect]
  9. DICLOFENAC SODIUM [Concomitant]

REACTIONS (7)
  - RESPIRATORY FAILURE [None]
  - ACUTE HEPATIC FAILURE [None]
  - BRAIN OEDEMA [None]
  - RENAL FAILURE ACUTE [None]
  - CONTINUOUS HAEMODIAFILTRATION [None]
  - COAGULOPATHY [None]
  - ENCEPHALOPATHY [None]
